FAERS Safety Report 5861745-X (Version None)
Quarter: 2008Q3

REPORT INFORMATION
  Report Type: 
  Country: None (occurrence: None)
  Receive Date: 20080827
  Receipt Date: 20080713
  Transmission Date: 20090109
  Serious: No
  Sender: FDA-Public Use
  Company Number: US-ABBOTT-08P-163-0462307-00

PATIENT
  Sex: Female
  Weight: 72.64 kg

DRUGS (9)
  1. NIASPAN [Suspect]
     Indication: BLOOD TRIGLYCERIDES INCREASED
     Dosage: AT BEDTIME
     Route: 048
     Dates: start: 20080705, end: 20080713
  2. NIASPAN [Suspect]
     Indication: HIGH DENSITY LIPOPROTEIN DECREASED
  3. NIASPAN [Suspect]
     Indication: LOW DENSITY LIPOPROTEIN INCREASED
  4. TIOTIXENE [Concomitant]
     Indication: BIPOLAR I DISORDER
     Route: 048
  5. QUETIAPINE [Concomitant]
     Indication: BIPOLAR I DISORDER
     Route: 048
  6. CARVEDILOL [Concomitant]
     Indication: BLOOD PRESSURE
     Route: 048
  7. LOTREL [Concomitant]
     Indication: BLOOD PRESSURE
     Route: 048
  8. IBUPROFEN [Concomitant]
     Indication: DRUG USE FOR UNKNOWN INDICATION
     Dosage: 1 HOUR PRIOR TO NIASPAN
     Route: 048
     Dates: start: 20080708
  9. FLUOXETINE [Concomitant]
     Indication: BIPOLAR I DISORDER
     Route: 048

REACTIONS (5)
  - FEELING ABNORMAL [None]
  - FLUSHING [None]
  - MENTAL IMPAIRMENT [None]
  - SENSORY DISTURBANCE [None]
  - UNEVALUABLE EVENT [None]
